FAERS Safety Report 23453811 (Version 1)
Quarter: 2024Q1

REPORT INFORMATION
  Report Type: Spontaneous
  Country: IT (occurrence: IT)
  Receive Date: 20240129
  Receipt Date: 20240129
  Transmission Date: 20240410
  Serious: Yes (Death, Hospitalization, Other)
  Sender: FDA-Public Use
  Company Number: None

PATIENT
  Age: 74 Year
  Sex: Female

DRUGS (8)
  1. ELIQUIS [Suspect]
     Active Substance: APIXABAN
     Indication: Atrial fibrillation
     Dosage: ELIQUIS ?60CPR RIV 5MG - DOSING SCHEDULE: 2 TABLETS/DAY
     Route: 048
     Dates: start: 20230308
  2. BISOPROLOL [Concomitant]
     Active Substance: BISOPROLOL\BISOPROLOL FUMARATE
     Indication: Hypertensive heart disease
     Dosage: CONGESCOR 2BCPR RIV 2.5MG -1 CP/DAY
     Route: 048
     Dates: start: 2023
  3. FLUTICASONE FUROATE\VILANTEROL TRIFENATATE [Concomitant]
     Active Substance: FLUTICASONE FUROATE\VILANTEROL TRIFENATATE
     Indication: Asthma
     Dosage: RELVAR ELLINAL 92+22MCG 30D - 1 IN/DAY
     Route: 048
     Dates: start: 2023
  4. ZOLOFT [Concomitant]
     Active Substance: SERTRALINE HYDROCHLORIDE
     Indication: Generalised anxiety disorder
     Dosage: ZOLOFT 30CPR RIV 50MG - 1 CP/DAY
     Route: 048
     Dates: start: 2023
  5. TRULICITY [Concomitant]
     Active Substance: DULAGLUTIDE
     Indication: Diabetes mellitus
     Dosage: TRULICITY4PEN 0.75MG 0.5ML- 1 FL PER WEEK
     Route: 058
     Dates: start: 202205
  6. PREGABALIN [Concomitant]
     Active Substance: PREGABALIN
     Indication: Neuralgia
     Dosage: ECUBALIN56CPS 75MG - 3 CP/DAY
     Route: 048
     Dates: start: 2023
  7. JARDIANCE [Concomitant]
     Active Substance: EMPAGLIFLOZIN
     Indication: Diabetes mellitus
     Dosage: JARDIANCE 28CPR RIV 10MG - 1 TABLET/DAY
     Route: 048
     Dates: start: 202212
  8. BRIVUDINE [Concomitant]
     Active Substance: BRIVUDINE
     Indication: Herpes virus infection
     Route: 048
     Dates: start: 202308, end: 202308

REACTIONS (4)
  - Renal failure [Unknown]
  - Glomerular filtration rate decreased [Unknown]
  - Blood creatinine [Unknown]
  - Pneumonia [Fatal]

NARRATIVE: CASE EVENT DATE: 20230831
